FAERS Safety Report 17157742 (Version 6)
Quarter: 2020Q4

REPORT INFORMATION
  Report Type: Report from Study
  Country: None (occurrence: NL)
  Receive Date: 20191216
  Receipt Date: 20201223
  Transmission Date: 20210113
  Serious: Yes (Hospitalization, Other)
  Sender: FDA-Public Use
  Company Number: NL-ABBVIE-18S-114-2584650-00

PATIENT
  Age: 72 Year
  Sex: Male

DRUGS (13)
  1. MOVICOLON / MOLAXOLE [Concomitant]
     Indication: PRODUCT USED FOR UNKNOWN INDICATION
     Dosage: 1 PIECE
     Route: 048
  2. DUODOPA [Suspect]
     Active Substance: CARBIDOPA\LEVODOPA
     Indication: PARKINSON^S DISEASE
     Dosage: MD 9.0 CD 4.3 ED 3.0 NIGHT PUMP: CD 2.2 ED 2.0  24 HOUR TREATMENT
     Route: 050
     Dates: start: 20181130
  3. CALCIUM CARBONATE/COLECAL [Concomitant]
     Indication: PRODUCT USED FOR UNKNOWN INDICATION
     Dosage: 1,25G / 440IE (500MG CA) 1 PIECE PER DAY?EFFERVESCENT TABLET
     Route: 048
  4. BISACODYL. [Concomitant]
     Active Substance: BISACODYL
     Indication: ABNORMAL FAECES
     Dosage: IF NECESSARY BEFORE ENEMA
  5. SOLIFENACIN/TAMSULOSIN [Concomitant]
     Indication: PRODUCT USED FOR UNKNOWN INDICATION
     Dosage: 1 PIECE A DAY
     Route: 048
  6. ROPINIROLE. [Concomitant]
     Active Substance: ROPINIROLE
     Indication: PARKINSON^S DISEASE
     Dosage: 1 PIECE A DAY
     Route: 048
  7. HYDROXOCOBALAMIN [Concomitant]
     Active Substance: HYDROXOCOBALAMIN
     Indication: PRODUCT USED FOR UNKNOWN INDICATION
     Dosage: 500 UG / ML
     Route: 050
  8. REQUIP [Concomitant]
     Active Substance: ROPINIROLE HYDROCHLORIDE
     Indication: PRODUCT USED FOR UNKNOWN INDICATION
     Dosage: CONTINUOUS DOSE INCREASED
  9. DUODOPA [Suspect]
     Active Substance: CARBIDOPA\LEVODOPA
     Dosage: MORNING DOSE: 9,0 ML CD: 4,5 ED: 3,0.?NIGHT : CD: 2,2 ED: 2 REMAIN AT 24 HR
     Route: 050
  10. PARACETAMOL [Concomitant]
     Active Substance: ACETAMINOPHEN
     Indication: PRODUCT USED FOR UNKNOWN INDICATION
     Route: 048
  11. LEVETIRACETAM. [Concomitant]
     Active Substance: LEVETIRACETAM
     Indication: CEREBRAL DISORDER
  12. DUODOPA [Suspect]
     Active Substance: CARBIDOPA\LEVODOPA
     Dosage: MD:9.0 ML, CD:4.7 ML/H, ED: 3.0 ML? REMAINS AT 24 HOURS
     Route: 050
  13. OMEPRAZOLE. [Concomitant]
     Active Substance: OMEPRAZOLE
     Indication: PRODUCT USED FOR UNKNOWN INDICATION
     Route: 048

REACTIONS (59)
  - Muscle rigidity [Not Recovered/Not Resolved]
  - Eructation [Not Recovered/Not Resolved]
  - Social avoidant behaviour [Not Recovered/Not Resolved]
  - Bowel movement irregularity [Recovered/Resolved]
  - Apathy [Not Recovered/Not Resolved]
  - Fall [Recovered/Resolved]
  - Fall [Recovered/Resolved]
  - Bradykinesia [Not Recovered/Not Resolved]
  - Stoma site discharge [Not Recovered/Not Resolved]
  - Depressed mood [Not Recovered/Not Resolved]
  - Urinary tract infection [Recovered/Resolved]
  - Pustule [Recovered/Resolved]
  - Urticaria [Unknown]
  - Sleep disorder [Recovered/Resolved]
  - Drug ineffective [Not Recovered/Not Resolved]
  - Stoma site inflammation [Recovered/Resolved]
  - Unevaluable event [Recovered/Resolved]
  - Anal incontinence [Not Recovered/Not Resolved]
  - Choking [Not Recovered/Not Resolved]
  - Stoma site pain [Recovered/Resolved]
  - Apnoea [Not Recovered/Not Resolved]
  - General physical health deterioration [Not Recovered/Not Resolved]
  - Cognitive disorder [Not Recovered/Not Resolved]
  - Therapeutic product effect incomplete [Not Recovered/Not Resolved]
  - Weight decreased [Recovered/Resolved]
  - Hypotension [Not Recovered/Not Resolved]
  - Parkinson^s disease [Not Recovered/Not Resolved]
  - Tension [Not Recovered/Not Resolved]
  - Dysphagia [Not Recovered/Not Resolved]
  - Bladder catheterisation [Recovering/Resolving]
  - Constipation [Not Recovered/Not Resolved]
  - Speech disorder [Not Recovered/Not Resolved]
  - Discoloured vomit [Not Recovered/Not Resolved]
  - Poor quality sleep [Recovered/Resolved]
  - Restlessness [Recovered/Resolved]
  - Medical device site dryness [Unknown]
  - Gait disturbance [Not Recovered/Not Resolved]
  - Therapeutic product effect variable [Recovered/Resolved]
  - Stoma site discharge [Recovered/Resolved]
  - On and off phenomenon [Not Recovered/Not Resolved]
  - On and off phenomenon [Not Recovered/Not Resolved]
  - Stoma site induration [Recovered/Resolved]
  - Herpes zoster [Recovering/Resolving]
  - Device issue [Not Recovered/Not Resolved]
  - Behaviour disorder [Not Recovered/Not Resolved]
  - Abnormal dreams [Not Recovered/Not Resolved]
  - Fall [Not Recovered/Not Resolved]
  - Stoma site erythema [Recovered/Resolved]
  - Hallucination [Recovered/Resolved]
  - Decreased appetite [Not Recovered/Not Resolved]
  - Daydreaming [Not Recovered/Not Resolved]
  - Urinary tract infection [Not Recovered/Not Resolved]
  - Memory impairment [Not Recovered/Not Resolved]
  - Fear [Not Recovered/Not Resolved]
  - Malaise [Unknown]
  - Pain [Recovering/Resolving]
  - Freezing phenomenon [Not Recovered/Not Resolved]
  - Dyskinesia [Not Recovered/Not Resolved]
  - Visual impairment [Not Recovered/Not Resolved]

NARRATIVE: CASE EVENT DATE: 2018
